FAERS Safety Report 10246884 (Version 2)
Quarter: 2014Q2

REPORT INFORMATION
  Report Type: Report from Study
  Country: FR (occurrence: FR)
  Receive Date: 20140619
  Receipt Date: 20140619
  Transmission Date: 20141212
  Serious: Yes (Death, Other)
  Sender: FDA-Public Use
  Company Number: FR-SA-CLOF-1001867

PATIENT
  Age: 14 Year
  Sex: Male
  Weight: 55 kg

DRUGS (1)
  1. CLOFARABINE [Suspect]
     Indication: ACUTE LYMPHOCYTIC LEUKAEMIA
     Dosage: 60 MG, QD
     Route: 042
     Dates: start: 20110721, end: 20110725

REACTIONS (4)
  - Mucosal inflammation [Recovered/Resolved]
  - Streptococcal sepsis [Recovered/Resolved]
  - Febrile neutropenia [Recovered/Resolved]
  - Acute lymphocytic leukaemia [Fatal]
